FAERS Safety Report 9288102 (Version 2)
Quarter: 2013Q2

REPORT INFORMATION
  Report Type: Spontaneous
  Country: DK (occurrence: GB)
  Receive Date: 20130514
  Receipt Date: 20130529
  Transmission Date: 20140414
  Serious: Yes (Other)
  Sender: FDA-Public Use
  Company Number: GB-FRI-1000045082

PATIENT
  Age: 19 Year
  Sex: Female
  Weight: 51 kg

DRUGS (5)
  1. CITALOPRAM [Suspect]
     Indication: DEPRESSION
     Dosage: 20 MG
     Route: 048
  2. CITALOPRAM [Suspect]
     Indication: GENERALISED ANXIETY DISORDER
     Dosage: 30 MG
     Route: 048
     Dates: start: 20130201, end: 20130401
  3. CITALOPRAM [Suspect]
     Dosage: 20 MG
     Dates: start: 20130401
  4. BUSCOPAN [Concomitant]
  5. LOESTRIN [Concomitant]
     Dosage: 20 MG

REACTIONS (4)
  - Headache [Recovered/Resolved]
  - Menstruation irregular [Recovered/Resolved]
  - Menorrhagia [Recovered/Resolved]
  - Migraine [Recovered/Resolved]
